FAERS Safety Report 16723627 (Version 1)
Quarter: 2019Q3

REPORT INFORMATION
  Report Type: Spontaneous
  Country: FR (occurrence: FR)
  Receive Date: 20190821
  Receipt Date: 20190821
  Transmission Date: 20191005
  Serious: Yes (Other)
  Sender: FDA-Public Use
  Company Number: FR-SUN PHARMACEUTICAL INDUSTRIES LTD-2019RR-218206

PATIENT
  Age: 70 Year
  Sex: Female
  Weight: 51 kg

DRUGS (9)
  1. DEXAMETHASONE (PHOSPHATE SODIQUE DE) [Suspect]
     Active Substance: DEXAMETHASONE SODIUM PHOSPHATE
     Indication: PLASMA CELL MYELOMA
     Dosage: CYCLICAL
     Route: 042
     Dates: start: 20190611
  2. REVLIMID [Suspect]
     Active Substance: LENALIDOMIDE
     Indication: PLASMA CELL MYELOMA
     Dosage: 20 MILLIGRAM, DAILY
     Route: 048
     Dates: start: 20190611, end: 20190624
  3. OROCAL D3, COMPRIME A SUCER [Concomitant]
     Indication: PRODUCT USED FOR UNKNOWN INDICATION
     Dosage: 1 DOSAGE FORM, DAILY
     Route: 048
     Dates: start: 20190611
  4. ORACILLINE 1 000 000 UI, COMPRIME SECABLE [Concomitant]
     Active Substance: PENICILLIN V
     Indication: OPPORTUNISTIC INFECTION PROPHYLAXIS
     Dosage: 2 KILO-INTERNATIONAL UNIT, DAILY
     Route: 048
     Dates: start: 20190521
  5. ZELITREX 500 MG, COMPRIME ENROBE [Concomitant]
     Active Substance: VALACYCLOVIR HYDROCHLORIDE
     Indication: OPPORTUNISTIC INFECTION PROPHYLAXIS
     Dosage: 500 MILLIGRAM, DAILY
     Route: 048
     Dates: start: 20190521
  6. VELCADE [Suspect]
     Active Substance: BORTEZOMIB
     Indication: PLASMA CELL MYELOMA
     Dosage: CYCLICAL
     Route: 041
     Dates: start: 20190611
  7. SPECIAFOLDINE 5 MG, COMPRIME [Concomitant]
     Active Substance: FOLIC ACID
     Indication: VITAMIN SUPPLEMENTATION
     Dosage: 30 MILLIGRAM, WEEKLY
     Route: 048
     Dates: start: 20190521
  8. OMEPRAZOLE. [Suspect]
     Active Substance: OMEPRAZOLE
     Indication: PRODUCT USED FOR UNKNOWN INDICATION
     Dosage: 20 MILLIGRAM, DAILY
     Route: 048
     Dates: start: 20190611, end: 20190625
  9. BACTRIM [Concomitant]
     Active Substance: SULFAMETHOXAZOLE\TRIMETHOPRIM
     Indication: OPPORTUNISTIC INFECTION PROPHYLAXIS
     Dosage: 3 DOSAGE FORM, WEEKLY
     Route: 048
     Dates: start: 20190521

REACTIONS (1)
  - Hepatitis cholestatic [Recovering/Resolving]

NARRATIVE: CASE EVENT DATE: 20190701
